FAERS Safety Report 14313346 (Version 1)
Quarter: 2017Q4

REPORT INFORMATION
  Report Type: Spontaneous
  Country: US (occurrence: US)
  Receive Date: 20171220
  Receipt Date: 20171220
  Transmission Date: 20180321
  Serious: Yes (Hospitalization)
  Sender: FDA-Public Use
  Company Number: None

PATIENT
  Age: 23 Year
  Sex: Male
  Weight: 92.25 kg

DRUGS (4)
  1. RISPERDAL [Concomitant]
     Active Substance: RISPERIDONE
  2. HALDOL [Concomitant]
     Active Substance: HALOPERIDOL
  3. ABILIFY MAINTENA [Suspect]
     Active Substance: ARIPIPRAZOLE
     Indication: BIPOLAR DISORDER
     Route: 030
     Dates: start: 20171129
  4. LITHIUM. [Concomitant]
     Active Substance: LITHIUM

REACTIONS (5)
  - Restlessness [None]
  - Depression [None]
  - Akathisia [None]
  - Abdominal discomfort [None]
  - Dysphoria [None]

NARRATIVE: CASE EVENT DATE: 20171209
